FAERS Safety Report 15526763 (Version 1)
Quarter: 2018Q4

REPORT INFORMATION
  Report Type: Spontaneous
  Country: BE (occurrence: BE)
  Receive Date: 20181018
  Receipt Date: 20181018
  Transmission Date: 20190205
  Serious: Yes (Other)
  Sender: FDA-Public Use
  Company Number: BE-NOVOPROD-622720

PATIENT
  Age: 11 Year
  Sex: Male
  Weight: 29.4 kg

DRUGS (1)
  1. NORDITROPIN [Suspect]
     Active Substance: SOMATROPIN
     Indication: GROWTH HORMONE DEFICIENCY
     Dosage: 1.05 MG, QD
     Route: 058
     Dates: start: 201104

REACTIONS (1)
  - Enchondromatosis [Recovering/Resolving]
